FAERS Safety Report 4415453-2 (Version None)
Quarter: 2004Q2

REPORT INFORMATION
  Report Type: 
  Country: None (occurrence: None)
  Receive Date: 20040630
  Receipt Date: 20040302
  Transmission Date: 20050107
  Serious: Yes (Other)
  Sender: FDA-Public Use
  Company Number: 2003113859

PATIENT
  Age: 56 Year
  Sex: Male
  Weight: 102.0593 kg

DRUGS (13)
  1. ZOLOFT [Suspect]
     Indication: DEPRESSION
     Dosage: 50 MG (DAILY), ORAL
     Route: 048
     Dates: start: 20030206
  2. TRAZODONE HCL [Suspect]
     Indication: INSOMNIA
     Dosage: 100 LMG (AT NIGHT; AS NEEDED), ORAL
     Route: 048
     Dates: start: 20030206, end: 20030305
  3. ELIDIUR (HYDROCHLOROTHIAZIDE, FOSINOPRIL SODIUM) [Concomitant]
  4. BACTRIM [Concomitant]
  5. SIMVASTATIN [Concomitant]
  6. KETOCONAZOLE [Concomitant]
  7. CALCIUM CARBONATE (CALCIUM CARBONATE) [Concomitant]
  8. LANSOPRAZOLE [Concomitant]
  9. NAPROXEN [Concomitant]
  10. IBUPROFEN [Concomitant]
  11. ETODOLAC [Concomitant]
  12. MUSCLE RELAXANTS (MUSCLE RELAXANTS) [Concomitant]
  13. ALL OTHER THERAPEUTIC PRODUCTS (ALL OTHER THERAPEUTIC PRODUCTS) [Concomitant]

REACTIONS (12)
  - AGGRESSION [None]
  - BACK PAIN [None]
  - DEPRESSION [None]
  - EATING DISORDER [None]
  - HYPERSOMNIA [None]
  - IRRITABILITY [None]
  - NASOPHARYNGITIS [None]
  - NECK PAIN [None]
  - ORAL DISCOMFORT [None]
  - STRESS SYMPTOMS [None]
  - UNEVALUABLE EVENT [None]
  - WEIGHT DECREASED [None]
